FAERS Safety Report 5207944-1 (Version None)
Quarter: 2007Q1

REPORT INFORMATION
  Report Type: 
  Country: None (occurrence: None)
  Receive Date: 20070115
  Receipt Date: 20070109
  Transmission Date: 20070707
  Serious: Yes (Other)
  Sender: FDA-Public Use
  Company Number: DE-ELI_LILLY_AND_COMPANY-DE200701002303

PATIENT
  Age: 54 Year
  Sex: Female

DRUGS (3)
  1. ZYPREXA [Suspect]
     Indication: SCHIZOAFFECTIVE DISORDER
     Dosage: 10 MG, UNK
     Route: 048
     Dates: end: 20061114
  2. LITHIUM CARBONATE [Concomitant]
  3. NEUROCIL [Concomitant]

REACTIONS (2)
  - DIABETES MELLITUS [None]
  - HEPATIC CIRRHOSIS [None]
